FAERS Safety Report 4828208-1 (Version None)
Quarter: 2005Q4

REPORT INFORMATION
  Report Type: 
  Country: None (occurrence: None)
  Receive Date: 20051115
  Receipt Date: 20051111
  Transmission Date: 20060501
  Serious: Yes (Death)
  Sender: FDA-Public Use
  Company Number: 2005JP002161

PATIENT
  Age: 68 Year
  Sex: Female

DRUGS (10)
  1. CEFAZOLIN [Suspect]
     Indication: DRUG USE FOR UNKNOWN INDICATION
     Dosage: 2G PER DAY
     Route: 042
     Dates: start: 20050831, end: 20050904
  2. TERNELIN [Concomitant]
  3. FLOMOX [Concomitant]
  4. CRAVIT [Concomitant]
  5. DANTRIUM [Concomitant]
  6. LOXONIN [Concomitant]
  7. MEILAX [Concomitant]
  8. TRYPTANOL [Concomitant]
  9. DOGMATYL [Concomitant]
  10. DEPAS [Concomitant]

REACTIONS (2)
  - DEATH [None]
  - LIVER DISORDER [None]
